FAERS Safety Report 10399801 (Version 5)
Quarter: 2015Q1

REPORT INFORMATION
  Report Type: Spontaneous
  Country: DE (occurrence: DE)
  Receive Date: 20140821
  Receipt Date: 20150209
  Transmission Date: 20150720
  Serious: Yes (Other)
  Sender: FDA-Public Use
  Company Number: DE-009507513-1408DEU011271

PATIENT
  Age: 42 Year
  Sex: Female
  Weight: 127 kg

DRUGS (4)
  1. IMPLANON [Suspect]
     Active Substance: ETONOGESTREL
     Dosage: UNK
     Route: 058
     Dates: start: 2004
  2. IMPLANON [Suspect]
     Active Substance: ETONOGESTREL
     Indication: CONTRACEPTION
     Dosage: UNK
     Route: 058
     Dates: start: 20010806
  3. MICROGYNON [Concomitant]
     Active Substance: ETHINYL ESTRADIOL\LEVONORGESTREL ACETATE
     Indication: CONTRACEPTION
     Dosage: UNK
     Dates: start: 1996, end: 2004
  4. CLINOVIR [Concomitant]
     Indication: CONTRACEPTION
     Dosage: UNK
     Dates: start: 2012, end: 2013

REACTIONS (9)
  - Medical device complication [Not Recovered/Not Resolved]
  - Medical device complication [Recovered/Resolved]
  - Overdose [Unknown]
  - Intraductal proliferative breast lesion [Unknown]
  - Incorrect drug administration duration [Unknown]
  - Incorrect drug administration duration [Unknown]
  - Obesity [Unknown]
  - Device difficult to use [Recovered/Resolved]
  - Weight increased [Unknown]

NARRATIVE: CASE EVENT DATE: 2004
